FAERS Safety Report 13167870 (Version 1)
Quarter: 2017Q1

REPORT INFORMATION
  Report Type: Report from Study
  Country: PT (occurrence: PT)
  Receive Date: 20170131
  Receipt Date: 20170131
  Transmission Date: 20170428
  Serious: Yes (Other)
  Sender: FDA-Public Use
  Company Number: PT-INGENUS PHARMACEUTICALS NJ, LLC-ING201701-000029

PATIENT
  Age: 17 Year
  Sex: Male

DRUGS (1)
  1. CARISOPRODOL AND ASPIRIN [Suspect]
     Active Substance: ASPIRIN\CARISOPRODOL

REACTIONS (2)
  - Angioedema [Unknown]
  - Drug hypersensitivity [Unknown]
